FAERS Safety Report 14660261 (Version 1)
Quarter: 2018Q1

REPORT INFORMATION
  Report Type: Spontaneous
  Country: US (occurrence: US)
  Receive Date: 20180317
  Receipt Date: 20180317
  Transmission Date: 20180509
  Serious: Yes (Hospitalization)
  Sender: FDA-Public Use
  Company Number: None

PATIENT
  Sex: Female

DRUGS (12)
  1. AMLODIPINE [Concomitant]
     Active Substance: AMLODIPINE BESYLATE
  2. ROZEREM [Concomitant]
     Active Substance: RAMELTEON
  3. CAPECITABINE. [Suspect]
     Active Substance: CAPECITABINE
     Indication: BREAST CANCER FEMALE
     Dosage: ?          OTHER FREQUENCY:BID FOR2W+1WEEKOFF;?
     Route: 048
     Dates: start: 20170920
  4. FISH OIL [Concomitant]
     Active Substance: FISH OIL
  5. MORPHINE SUL [Concomitant]
     Active Substance: MORPHINE SULFATE
  6. MULTIVITAMIN [Concomitant]
     Active Substance: VITAMINS
  7. DONEPEZIL. [Concomitant]
     Active Substance: DONEPEZIL
  8. DIPHEN/ATROP [Concomitant]
     Active Substance: ATROPINE SULFATE\DIPHENOXYLATE
  9. ONDANSETRON [Concomitant]
     Active Substance: ONDANSETRON
  10. CALTRATE+D [Concomitant]
  11. BUSPIRONE [Concomitant]
     Active Substance: BUSPIRONE HYDROCHLORIDE
  12. HYDROCO/APAP [Concomitant]
     Active Substance: ACETAMINOPHEN\HYDROCODONE

REACTIONS (1)
  - Cellulitis [None]
